FAERS Safety Report 9126001 (Version 1)
Quarter: 2013Q1

REPORT INFORMATION
  Report Type: Spontaneous
  Country: US (occurrence: US)
  Receive Date: 20130117
  Receipt Date: 20130117
  Transmission Date: 20140127
  Serious: No
  Sender: FDA-Public Use
  Company Number: US-ASTRAZENECA-2012SE94765

PATIENT
  Sex: Female

DRUGS (7)
  1. METOPROLOL [Suspect]
     Route: 065
  2. CRESTOR [Suspect]
     Route: 048
  3. NIASPAN [Suspect]
     Indication: BLOOD CHOLESTEROL INCREASED
     Route: 065
     Dates: start: 201203
  4. CARTIA [Concomitant]
  5. ASA [Concomitant]
  6. WARFARIN [Concomitant]
  7. PRAVASTATIN [Concomitant]

REACTIONS (2)
  - Bone pain [Recovering/Resolving]
  - Myalgia [Recovering/Resolving]
